FAERS Safety Report 20869217 (Version 2)
Quarter: 2022Q3

REPORT INFORMATION
  Report Type: Spontaneous
  Country: US (occurrence: US)
  Receive Date: 20220524
  Receipt Date: 20220908
  Transmission Date: 20221027
  Serious: No
  Sender: FDA-Public Use
  Company Number: US-BRISTOL-MYERS SQUIBB COMPANY-2022-031971

PATIENT
  Age: 88 Year
  Sex: Female

DRUGS (1)
  1. REVLIMID [Suspect]
     Active Substance: LENALIDOMIDE
     Indication: Myelodysplastic syndrome
     Dosage: EVERY NIGHT AT ?BEDTIME FOR 21 ?DAYS
     Route: 048

REACTIONS (5)
  - Constipation [Unknown]
  - Pyrexia [Unknown]
  - Fatigue [Unknown]
  - Intentional product use issue [Unknown]
  - Hot flush [Recovered/Resolved]
